FAERS Safety Report 15445570 (Version 3)
Quarter: 2018Q4

REPORT INFORMATION
  Report Type: Report from Study
  Country: US (occurrence: US)
  Receive Date: 20180928
  Receipt Date: 20181011
  Transmission Date: 20190204
  Serious: Yes (Death, Hospitalization)
  Sender: FDA-Public Use
  Company Number: US-TAIHO ONCOLOGY  INC-US-2018-00125

PATIENT
  Age: 74 Year
  Sex: Female
  Weight: 70.6 kg

DRUGS (24)
  1. TAS-102 [Suspect]
     Active Substance: TIPIRACIL HYDROCHLORIDE\TRIFLURIDINE
     Indication: NEUROENDOCRINE TUMOUR
     Dosage: CURRENT CYCLE UNKNOWN
     Route: 048
     Dates: start: 20180829
  2. PREDNISOLONE ACETATE. [Concomitant]
     Active Substance: PREDNISOLONE ACETATE
     Dates: start: 20160513
  3. HYDROCODONE BITARTRATE AND ACETAMINOPHEN [Concomitant]
     Active Substance: ACETAMINOPHEN\HYDROCODONE BITARTRATE
     Dates: start: 20180731
  4. BUDESONIDE. [Concomitant]
     Active Substance: BUDESONIDE
     Dates: start: 20180702
  5. DILTIAZEM. [Concomitant]
     Active Substance: DILTIAZEM
     Dates: start: 20180803
  6. FUROSEMIDE. [Concomitant]
     Active Substance: FUROSEMIDE
     Dates: start: 20180410
  7. PREDNISOLONE. [Concomitant]
     Active Substance: PREDNISOLONE
     Dates: start: 20180511
  8. TEMOZOLOMIDE. [Suspect]
     Active Substance: TEMOZOLOMIDE
     Indication: NEUROENDOCRINE TUMOUR
     Dosage: CURRENT CYCLE UNKNOWN
     Route: 048
     Dates: start: 20180905, end: 20180909
  9. OMEPRAZOLE. [Concomitant]
     Active Substance: OMEPRAZOLE
     Dates: start: 20171019
  10. LEVALBUTEROL. [Concomitant]
     Active Substance: LEVALBUTEROL
     Dates: start: 20180604
  11. MORPHINE [Concomitant]
     Active Substance: MORPHINE
     Dates: start: 20180922
  12. INSULIN GLARGINE [Concomitant]
     Active Substance: INSULIN GLARGINE
     Dates: start: 20180410
  13. TIMOLOL HEMIHYDRATE [Concomitant]
  14. TIOTROPIUM [Concomitant]
     Active Substance: TIOTROPIUM
     Dates: start: 20180703
  15. DIGOXIN. [Concomitant]
     Active Substance: DIGOXIN
     Dates: start: 20180816
  16. SAXAGLIPTIN HCL [Concomitant]
     Active Substance: SAXAGLIPTIN HYDROCHLORIDE
     Dates: start: 20161205
  17. HIZENTRA [Concomitant]
     Active Substance: HUMAN IMMUNOGLOBULIN G
     Dates: start: 201407
  18. IMPRAMINE [Concomitant]
     Active Substance: IMIPRAMINE
     Dates: start: 20180730
  19. ALLOPURINOL. [Concomitant]
     Active Substance: ALLOPURINOL
     Dates: start: 20180606
  20. RIVAROXABAN [Concomitant]
     Active Substance: RIVAROXABAN
     Dates: start: 20180611
  21. ATORVASTATIN [Concomitant]
     Active Substance: ATORVASTATIN
     Dates: start: 20160614
  22. AZITHROMYCIN ANHYDROUS. [Concomitant]
     Active Substance: AZITHROMYCIN ANHYDROUS
     Dates: start: 20180703
  23. DUONEB [Concomitant]
     Active Substance: ALBUTEROL SULFATE\IPRATROPIUM BROMIDE
     Dates: start: 20180922
  24. METFORMIN [Concomitant]
     Active Substance: METFORMIN HYDROCHLORIDE
     Dates: start: 20180606

REACTIONS (3)
  - Muscular weakness [Not Recovered/Not Resolved]
  - Fatigue [Not Recovered/Not Resolved]
  - Death [Fatal]

NARRATIVE: CASE EVENT DATE: 20180919
